FAERS Safety Report 16622724 (Version 3)
Quarter: 2020Q1

REPORT INFORMATION
  Report Type: Report from Study
  Country: US (occurrence: US)
  Receive Date: 20190723
  Receipt Date: 20200121
  Transmission Date: 20200409
  Serious: No
  Sender: FDA-Public Use
  Company Number: PHEH2019US030254

PATIENT
  Age: 49 Year
  Sex: Male

DRUGS (2)
  1. COSENTYX [Suspect]
     Active Substance: SECUKINUMAB
     Dosage: 300 MG
     Route: 058
     Dates: start: 20190620
  2. COSENTYX [Suspect]
     Active Substance: SECUKINUMAB
     Indication: PSORIASIS
     Dosage: 300 MG, UNK
     Route: 058
     Dates: start: 20190613

REACTIONS (2)
  - Injection site pain [Recovered/Resolved with Sequelae]
  - Wrong technique in product usage process [Recovered/Resolved with Sequelae]

NARRATIVE: CASE EVENT DATE: 20190613
